FAERS Safety Report 21146559 (Version 1)
Quarter: 2022Q3

REPORT INFORMATION
  Report Type: Spontaneous
  Country: US (occurrence: US)
  Receive Date: 20220729
  Receipt Date: 20220729
  Transmission Date: 20221027
  Serious: No
  Sender: FDA-Public Use
  Company Number: US-drreddys-SPO/USA/22/0152185

PATIENT
  Age: 17 Year
  Sex: Female

DRUGS (2)
  1. ACCUTANE [Suspect]
     Active Substance: ISOTRETINOIN
     Indication: Hidradenitis
     Dosage: RMA ISSUE DATE: 17 MAY 2022 03:24:03 PM, 18 APRIL 2022 05:24:29 PM, 24 MARCH 2022 04:26:33 PM, 21 FE
  2. ACCUTANE [Suspect]
     Active Substance: ISOTRETINOIN
     Dosage: RMA ISSUE DATE: 21 FEBRUARY 2022 02:27:45 PM, 24 MARCH 2022 04:26:33 PM, 18 APRIL 202 05:24:29 PM, 1

REACTIONS (1)
  - Therapeutic product ineffective for unapproved indication [Unknown]
